FAERS Safety Report 18007037 (Version 1)
Quarter: 2020Q3

REPORT INFORMATION
  Report Type: Spontaneous
  Country: US (occurrence: US)
  Receive Date: 20200710
  Receipt Date: 20200710
  Transmission Date: 20201103
  Serious: No
  Sender: FDA-Public Use
  Company Number: US-009507513-2007USA001579

PATIENT
  Age: 73 Year
  Sex: Male

DRUGS (2)
  1. CUBICIN [Suspect]
     Active Substance: DAPTOMYCIN
     Indication: ENDOCARDITIS BACTERIAL
     Dosage: UNK
  2. GENTAMICIN. [Concomitant]
     Active Substance: GENTAMICIN
     Indication: ENDOCARDITIS BACTERIAL
     Dosage: UNK

REACTIONS (1)
  - Off label use [Unknown]
